FAERS Safety Report 8989060 (Version 1)
Quarter: 2012Q4

REPORT INFORMATION
  Report Type: 
  Country: FR (occurrence: FR)
  Receive Date: 20121227
  Receipt Date: 20121227
  Transmission Date: 20130627
  Serious: Yes (Hospitalization)
  Sender: FDA-Public Use
  Company Number: FR-B.I. PHARMACEUTICALS,INC./RIDGEFIELD-2012-FF-02018FF

PATIENT
  Age: 90 Year
  Sex: Male

DRUGS (4)
  1. PRADAXA [Suspect]
     Indication: ATRIAL FIBRILLATION
     Dosage: 220 mg
     Route: 048
     Dates: start: 20121011, end: 20121029
  2. CORDARONE [Suspect]
     Indication: ATRIAL FIBRILLATION
     Dosage: 200 mg
     Route: 048
     Dates: start: 20121011
  3. KARDEGIC [Suspect]
     Indication: ISCHAEMIC CARDIOMYOPATHY
     Dosage: 160 mg
     Route: 048
     Dates: end: 20121031
  4. AMLODIPINE [Suspect]
     Indication: HYPERTENSION
     Dosage: 5 mg
     Route: 048
     Dates: end: 20121031

REACTIONS (6)
  - Haemorrhage [Recovered/Resolved]
  - Factor II deficiency [Not Recovered/Not Resolved]
  - Factor V deficiency [Not Recovered/Not Resolved]
  - Coagulation factor X level decreased [Not Recovered/Not Resolved]
  - Activated partial thromboplastin time prolonged [Not Recovered/Not Resolved]
  - International normalised ratio increased [Not Recovered/Not Resolved]
